FAERS Safety Report 12528131 (Version 5)
Quarter: 2016Q3

REPORT INFORMATION
  Report Type: Spontaneous
  Country: FR (occurrence: FR)
  Receive Date: 20160705
  Receipt Date: 20160728
  Transmission Date: 20161109
  Serious: Yes (Hospitalization)
  Sender: FDA-Public Use
  Company Number: FR-PFIZER INC-2016321957

PATIENT
  Age: 72 Year
  Sex: Male

DRUGS (14)
  1. ACUPAN [Suspect]
     Active Substance: NEFOPAM HYDROCHLORIDE
     Indication: PAIN
     Dosage: 120 MG, 1X/DAY
     Route: 042
     Dates: start: 20151223, end: 20151225
  2. ATROPINE SULFATE AGUETTANT [Suspect]
     Active Substance: ATROPINE SULFATE
     Dosage: 0.5 MG, SINGLE
     Route: 042
     Dates: start: 20151223, end: 20151223
  3. PROPOFOL PANPHARMA [Suspect]
     Active Substance: PROPOFOL
     Indication: GENERAL ANAESTHESIA
     Dosage: UNK
     Route: 042
     Dates: start: 20151223, end: 20151223
  4. ATRACURIUM BESILATE [Suspect]
     Active Substance: ATRACURIUM BESYLATE
     Indication: GENERAL ANAESTHESIA
     Dosage: UNK
     Route: 042
     Dates: start: 20151223, end: 20151223
  5. AMOXICILLINE PANPHARMA [Suspect]
     Active Substance: AMOXICILLIN
     Dosage: 2 G, SINGLE
     Route: 042
     Dates: start: 20151223, end: 20151223
  6. CONTRAMAL [Suspect]
     Active Substance: TRAMADOL HYDROCHLORIDE
     Indication: PAIN
     Dosage: 100 MG, 1X/DAY
     Route: 048
     Dates: start: 20151223, end: 20151226
  7. SUFENTANIL MYLAN [Suspect]
     Active Substance: SUFENTANIL
     Indication: GENERAL ANAESTHESIA
     Dosage: UNK
     Route: 042
     Dates: start: 20151223, end: 20151223
  8. DROLEPTAN [Suspect]
     Active Substance: DROPERIDOL
     Dosage: UNK
     Route: 042
     Dates: start: 20151223, end: 20151223
  9. XYLOCAINE [Suspect]
     Active Substance: LIDOCAINE HYDROCHLORIDE
     Indication: ANAESTHESIA
     Dosage: UNK
     Route: 042
     Dates: start: 20151223, end: 20151223
  10. EPHEDRINE AGUETTANT [Suspect]
     Active Substance: EPHEDRINE
     Dosage: UNK
     Route: 042
     Dates: start: 20151223, end: 20151223
  11. AMOXICILLINE/ACIDE CLAVULANIQ. SANDOZ [Suspect]
     Active Substance: AMOXICILLIN\CLAVULANIC ACID
     Dosage: 2 G, DAILY
     Route: 048
     Dates: start: 20151222, end: 20151224
  12. DEXAMETHASONE MYLAN [Suspect]
     Active Substance: DEXAMETHASONE
     Dosage: UNK
     Route: 042
     Dates: start: 20151223, end: 20151223
  13. SUPRANE [Suspect]
     Active Substance: DESFLURANE
     Indication: GENERAL ANAESTHESIA
     Dosage: UNK
     Route: 055
     Dates: start: 20151223, end: 20151223
  14. GENTAMICINE PANPHARMA [Suspect]
     Active Substance: GENTAMICIN
     Indication: PROPHYLAXIS
     Dosage: 280 MG, SINGLE
     Route: 042
     Dates: start: 20151223, end: 20151223

REACTIONS (1)
  - Acute kidney injury [Recovering/Resolving]

NARRATIVE: CASE EVENT DATE: 20151224
